FAERS Safety Report 10976350 (Version 1)
Quarter: 2015Q2

REPORT INFORMATION
  Report Type: Spontaneous
  Country: US (occurrence: US)
  Receive Date: 20150401
  Receipt Date: 20150401
  Transmission Date: 20150821
  Serious: Yes (Hospitalization)
  Sender: FDA-Public Use
  Company Number: US-ABBVIE-15P-163-1367029-00

PATIENT
  Age: 44 Year
  Sex: Male

DRUGS (1)
  1. ANDROGEL [Suspect]
     Active Substance: TESTOSTERONE
     Indication: BLOOD TESTOSTERONE DECREASED
     Route: 065
     Dates: start: 20120221, end: 201204

REACTIONS (7)
  - Economic problem [Unknown]
  - Myocardial infarction [Unknown]
  - Fear [Unknown]
  - Cardiovascular disorder [Unknown]
  - Anhedonia [Recovering/Resolving]
  - Social problem [Unknown]
  - Medical observation [Unknown]

NARRATIVE: CASE EVENT DATE: 20120709
